FAERS Safety Report 6904618-3 (Version None)
Quarter: 2010Q3

REPORT INFORMATION
  Report Type: 
  Country: None (occurrence: None)
  Receive Date: 20100804
  Receipt Date: 20090619
  Transmission Date: 20110219
  Serious: Yes (Other)
  Sender: FDA-Public Use
  Company Number: US-PFIZER INC-2009193143

PATIENT
  Sex: Female
  Weight: 86.168 kg

DRUGS (11)
  1. LYRICA [Suspect]
     Indication: FIBROMYALGIA
     Dosage: 50 MG, 1X/DAY
     Dates: start: 20080101
  2. CYMBALTA [Concomitant]
  3. WELLBUTRIN [Concomitant]
  4. LASIX [Concomitant]
  5. TOPAMAX [Concomitant]
  6. CLARINEX [Concomitant]
  7. TRIAMTERENE AND HYDROCHLOROTHIAZIDE [Concomitant]
  8. FLUCONAZOLE [Concomitant]
     Indication: VULVOVAGINAL CANDIDIASIS
  9. AMBIEN [Concomitant]
  10. DESYREL [Concomitant]
  11. KLONOPIN [Concomitant]

REACTIONS (10)
  - ARTHRALGIA [None]
  - BLOOD CHOLESTEROL INCREASED [None]
  - FIBROMYALGIA [None]
  - HEADACHE [None]
  - HEPATIC ENZYME INCREASED [None]
  - ILL-DEFINED DISORDER [None]
  - INJURY [None]
  - JOINT RANGE OF MOTION DECREASED [None]
  - OEDEMA PERIPHERAL [None]
  - PAIN [None]
